FAERS Safety Report 6999882-9 (Version None)
Quarter: 2010Q3

REPORT INFORMATION
  Report Type: 
  Country: None (occurrence: None)
  Receive Date: 20100920
  Receipt Date: 20090720
  Transmission Date: 20110219
  Serious: Yes (Other)
  Sender: FDA-Public Use
  Company Number: US-ASTRAZENECA-2007UW04483

PATIENT
  Age: 557 Month
  Sex: Female

DRUGS (10)
  1. SEROQUEL [Suspect]
     Dosage: 50 MG-200 MG DAILY
     Route: 048
     Dates: start: 20031027, end: 20060407
  2. ALPRAZOLAM [Concomitant]
     Dosage: 1 MG DAILY
     Dates: start: 20011116
  3. PAXIL CR [Concomitant]
     Dosage: 25 MG DAILY
     Dates: start: 20031027
  4. HYDROCODONE BITARTRATE AND ACETAMINOPHEN [Concomitant]
     Dosage: 5/500 DAILY
     Dates: start: 20031226
  5. CARISOPRODOL [Concomitant]
     Dosage: 350 MG 1 ONE TAB EVER
     Dates: start: 20031226
  6. LEXAPRO [Concomitant]
     Dosage: 10 MG TWO A HALF TABLET
     Dates: start: 20040209
  7. PREDNISONE [Concomitant]
     Dates: start: 20040228
  8. IBUPROFEN [Concomitant]
     Dosage: 800 MG TAKE ONE TABLET TH
     Dates: start: 20040228
  9. DIAZEPAM [Concomitant]
     Dosage: 5 MG TAKE ONE TABLET BY M
     Dates: start: 20040430
  10. FLUOXETINE [Concomitant]
     Dosage: 20 MG TAKE ONE CAPSULE EAC
     Dates: start: 20040507

REACTIONS (4)
  - DIABETES MELLITUS [None]
  - KETOACIDOSIS [None]
  - PANCREATITIS [None]
  - TYPE 2 DIABETES MELLITUS [None]
